FAERS Safety Report 21720452 (Version 4)
Quarter: 2023Q1

REPORT INFORMATION
  Report Type: Spontaneous
  Country: US (occurrence: US)
  Receive Date: 20221213
  Receipt Date: 20230310
  Transmission Date: 20230417
  Serious: No
  Sender: FDA-Public Use
  Company Number: US-BRISTOL-MYERS SQUIBB COMPANY-2022-152478

PATIENT
  Age: 53 Year
  Sex: Female

DRUGS (2)
  1. ORENCIA [Suspect]
     Active Substance: ABATACEPT
     Indication: Rheumatoid arthritis
     Route: 058
     Dates: start: 20221122
  2. ORENCIA [Suspect]
     Active Substance: ABATACEPT
     Indication: Arthralgia
     Route: 058
     Dates: start: 20230105

REACTIONS (3)
  - Abdominal discomfort [Unknown]
  - Salivary hypersecretion [Unknown]
  - Pain [Unknown]
